FAERS Safety Report 4618074-1 (Version None)
Quarter: 2005Q1

REPORT INFORMATION
  Report Type: 
  Country: None (occurrence: None)
  Receive Date: 20050322
  Receipt Date: 20050309
  Transmission Date: 20050727
  Serious: Yes (Other)
  Sender: FDA-Public Use
  Company Number: 2005043926

PATIENT
  Age: 88 Year
  Sex: Female
  Weight: 58.9676 kg

DRUGS (2)
  1. DETROL LA [Suspect]
     Indication: HYPERTONIC BLADDER
     Dosage: 4 MG (4 MG, DAILY), ORAL
     Route: 048
     Dates: start: 20030301, end: 20050307
  2. VITAMINS (VITAMINS) [Concomitant]

REACTIONS (1)
  - GLAUCOMA [None]
